FAERS Safety Report 5518694-6 (Version None)
Quarter: 2007Q4

REPORT INFORMATION
  Report Type: 
  Country: None (occurrence: None)
  Receive Date: 20071115
  Receipt Date: 20071112
  Transmission Date: 20080405
  Serious: Yes (Other)
  Sender: FDA-Public Use
  Company Number: US-SHR-US-2007-018709

PATIENT
  Age: 47 Year
  Sex: Female

DRUGS (5)
  1. BETASERON [Suspect]
     Indication: SECONDARY PROGRESSIVE MULTIPLE SCLEROSIS
     Dosage: 8 MIU, EVERY 2D
     Route: 058
     Dates: start: 20031117
  2. PROVIGIL [Concomitant]
  3. CELEXA [Concomitant]
  4. ORTHO CYCLEN-21 [Concomitant]
  5. CYMBALTA [Concomitant]

REACTIONS (5)
  - ASTHMA [None]
  - DYSPHONIA [None]
  - DYSPNOEA [None]
  - LARYNGEAL OEDEMA [None]
  - THROAT IRRITATION [None]
